FAERS Safety Report 16963028 (Version 1)
Quarter: 2019Q4

REPORT INFORMATION
  Report Type: Spontaneous
  Country: US (occurrence: US)
  Receive Date: 20190907
  Receipt Date: 20190907
  Transmission Date: 20200122
  Serious: Yes (Hospitalization)
  Sender: FDA-Public Use
  Company Number: None

PATIENT
  Age: 64 Year
  Sex: Female
  Weight: 65.6 kg

DRUGS (2)
  1. CISPLATIN. [Suspect]
     Active Substance: CISPLATIN
     Dates: end: 20190826
  2. ETOPOSIDE (VP-16) [Suspect]
     Active Substance: ETOPOSIDE
     Dates: end: 20190826

REACTIONS (7)
  - Nausea [None]
  - Vomiting [None]
  - Neutropenia [None]
  - White blood cell count decreased [None]
  - Thrombocytopenia [None]
  - Anaemia [None]
  - Pancytopenia [None]

NARRATIVE: CASE EVENT DATE: 20190902
